FAERS Safety Report 8496389-7 (Version None)
Quarter: 2012Q3

REPORT INFORMATION
  Report Type: 
  Country: None (occurrence: None)
  Receive Date: 20120709
  Receipt Date: 20120703
  Transmission Date: 20120928
  Serious: No
  Sender: FDA-Public Use
  Company Number: US-PFIZER INC-2012142788

PATIENT
  Sex: Male
  Weight: 73.5 kg

DRUGS (1)
  1. LIPITOR [Suspect]
     Indication: BLOOD CHOLESTEROL INCREASED
     Dosage: 20 MG, DAILY
     Route: 048
     Dates: start: 20080101

REACTIONS (2)
  - DYSPEPSIA [None]
  - DRUG DISPENSING ERROR [None]
